FAERS Safety Report 19709981 (Version 1)
Quarter: 2021Q3

REPORT INFORMATION
  Report Type: Report from Study
  Country: US (occurrence: US)
  Receive Date: 20210817
  Receipt Date: 20210817
  Transmission Date: 20211014
  Serious: Yes (Hospitalization)
  Sender: FDA-Public Use
  Company Number: US-EXELIXIS-XL18421042982

PATIENT
  Age: 63 Year
  Sex: Male
  Weight: 52.4 kg

DRUGS (2)
  1. DURVALUMAB. [Suspect]
     Active Substance: DURVALUMAB
     Indication: RECTAL CANCER
     Dosage: 1500 MG, Q4WEEKS
     Route: 042
     Dates: start: 20210121, end: 20210610
  2. XL184 [Suspect]
     Active Substance: CABOZANTINIB
     Indication: RECTAL CANCER
     Dosage: 20 MG, QD
     Route: 048
     Dates: start: 20210121, end: 20210708

REACTIONS (5)
  - Hypophagia [Unknown]
  - Hypotension [Unknown]
  - Hypercalcaemia [Unknown]
  - Blood bilirubin increased [Unknown]
  - Transaminases increased [Unknown]

NARRATIVE: CASE EVENT DATE: 20210730
